FAERS Safety Report 25673889 (Version 2)
Quarter: 2025Q3

REPORT INFORMATION
  Report Type: Spontaneous
  Country: US (occurrence: US)
  Receive Date: 20250813
  Receipt Date: 20250818
  Transmission Date: 20251021
  Serious: No
  Sender: SANDOZ
  Company Number: US-SANDOZ-SDZ2025US056592

PATIENT

DRUGS (1)
  1. ANECTINE [Suspect]
     Active Substance: SUCCINYLCHOLINE CHLORIDE
     Indication: Electroconvulsive therapy
     Route: 065

REACTIONS (2)
  - Drug ineffective [Unknown]
  - Drug effect less than expected [Unknown]
